FAERS Safety Report 20003695 (Version 1)
Quarter: 2021Q4

REPORT INFORMATION
  Report Type: Spontaneous
  Country: US (occurrence: US)
  Receive Date: 20211027
  Receipt Date: 20211027
  Transmission Date: 20220303
  Serious: No
  Sender: FDA-Public Use
  Company Number: US-BLUEPRINT MEDICINES CORPORATION-SP-US-2021-001926

PATIENT
  Sex: Female

DRUGS (1)
  1. AYVAKIT [Suspect]
     Active Substance: AVAPRITINIB
     Indication: Systemic mastocytosis
     Route: 048

REACTIONS (7)
  - Influenza like illness [Unknown]
  - Blood lactate dehydrogenase increased [Unknown]
  - Nausea [Unknown]
  - Fatigue [Unknown]
  - Lacrimation increased [Unknown]
  - Hair colour changes [Unknown]
  - Red blood cell count decreased [Unknown]
